FAERS Safety Report 20512293 (Version 7)
Quarter: 2022Q1

REPORT INFORMATION
  Report Type: Report from Study
  Country: AU (occurrence: AU)
  Receive Date: 20220224
  Receipt Date: 20220325
  Transmission Date: 20220424
  Serious: Yes (Other)
  Sender: FDA-Public Use
  Company Number: AU-JNJFOC-20211110615

PATIENT
  Age: 65 Year
  Sex: Male

DRUGS (27)
  1. SELEXIPAG [Suspect]
     Active Substance: SELEXIPAG
     Indication: Pulmonary arterial hypertension
     Route: 048
     Dates: start: 20211101
  2. SELEXIPAG [Suspect]
     Active Substance: SELEXIPAG
     Dosage: 200 IN THE AM AND 200 IN THE PM
     Route: 048
     Dates: start: 20211004
  3. SELEXIPAG [Suspect]
     Active Substance: SELEXIPAG
     Route: 048
     Dates: start: 20211018
  4. SELEXIPAG [Suspect]
     Active Substance: SELEXIPAG
     Route: 048
     Dates: start: 20211116
  5. SELEXIPAG [Suspect]
     Active Substance: SELEXIPAG
     Route: 048
     Dates: start: 20211129
  6. SELEXIPAG [Suspect]
     Active Substance: SELEXIPAG
     Route: 048
     Dates: start: 20211202
  7. SELEXIPAG [Suspect]
     Active Substance: SELEXIPAG
     Dosage: STRENGHT 800+200 MICROGRAMS
     Route: 048
     Dates: start: 20211213
  8. SELEXIPAG [Suspect]
     Active Substance: SELEXIPAG
     Dosage: STRENGHT 800+200 MICROGRAMS
     Route: 048
     Dates: start: 20220110
  9. SELEXIPAG [Suspect]
     Active Substance: SELEXIPAG
     Dosage: 800MCG AM AND 1000MCG PM
     Route: 048
     Dates: start: 20220118
  10. SELEXIPAG [Suspect]
     Active Substance: SELEXIPAG
     Route: 048
     Dates: start: 20220124
  11. SELEXIPAG [Suspect]
     Active Substance: SELEXIPAG
     Route: 048
     Dates: start: 20220211
  12. MACITENTAN [Suspect]
     Active Substance: MACITENTAN
     Indication: Pulmonary arterial hypertension
     Route: 048
  13. TADALAFIL [Suspect]
     Active Substance: TADALAFIL
     Indication: Pulmonary arterial hypertension
     Route: 048
  14. ACETAMINOPHEN [Concomitant]
     Active Substance: ACETAMINOPHEN
  15. AMLODIPINE [Concomitant]
     Active Substance: AMLODIPINE BESYLATE
  16. ALLOPURINOL [Concomitant]
     Active Substance: ALLOPURINOL
     Dosage: BREAK FAST
  17. ALVESCO [Concomitant]
     Active Substance: CICLESONIDE
  18. ALBUTEROL SULFATE [Concomitant]
     Active Substance: ALBUTEROL SULFATE
     Indication: Dyspnoea
  19. ATORVASTATIN [Concomitant]
     Active Substance: ATORVASTATIN
     Dosage: BEFORE BED
  20. FUROSEMIDE [Concomitant]
     Active Substance: FUROSEMIDE
     Dosage: BREAKFAST
  21. RABEPRAZOLE [Concomitant]
     Active Substance: RABEPRAZOLE
     Dosage: BREAKFAST
  22. SPIRONOLACTONE [Concomitant]
     Active Substance: SPIRONOLACTONE
     Indication: Pulmonary arterial hypertension
  23. SPIRIVA RESPIMAT [Concomitant]
     Active Substance: TIOTROPIUM BROMIDE
  24. TELMISARTAN [Concomitant]
     Active Substance: TELMISARTAN
     Dosage: BEFORE BED
  25. COVID-19 VACCINE [Concomitant]
     Indication: COVID-19 prophylaxis
     Route: 065
  26. COVID-19 VACCINE [Concomitant]
     Route: 065
  27. COVID-19 VACCINE [Concomitant]
     Dosage: BOOSTER
     Route: 065
     Dates: start: 20220215

REACTIONS (12)
  - Abdominal pain [Recovering/Resolving]
  - Arthralgia [Recovering/Resolving]
  - Blood blister [Recovered/Resolved]
  - Fatigue [Recovered/Resolved]
  - Diarrhoea [Recovering/Resolving]
  - Myalgia [Recovering/Resolving]
  - Headache [Recovering/Resolving]
  - Nocturia [Recovering/Resolving]
  - Anal incontinence [Recovering/Resolving]
  - Vomiting [Recovering/Resolving]
  - Abdominal distension [Recovering/Resolving]
  - Product dose omission issue [Unknown]

NARRATIVE: CASE EVENT DATE: 20211005
